FAERS Safety Report 10219820 (Version 2)
Quarter: 2014Q2

REPORT INFORMATION
  Report Type: Spontaneous
  Country: US (occurrence: US)
  Receive Date: 20140605
  Receipt Date: 20140618
  Transmission Date: 20141212
  Serious: Yes (Other)
  Sender: FDA-Public Use
  Company Number: US-PFIZER INC-2014150499

PATIENT
  Age: 72 Year
  Sex: Female
  Weight: 62.13 kg

DRUGS (9)
  1. SUTENT [Suspect]
     Indication: METASTATIC RENAL CELL CARCINOMA
     Dosage: 37.5 MG, 1X/DAY
     Route: 048
     Dates: start: 201103
  2. LEVOTHYROXINE [Concomitant]
     Dosage: 62.5 UG, UNK
     Route: 048
  3. CELEXA [Concomitant]
     Dosage: 20 MG, UNK
  4. PRILOSEC [Concomitant]
     Dosage: 20 MG, UNK
  5. PREDNISONE [Concomitant]
     Dosage: 7.5 MG, 1X/DAY
  6. FLUDROCORTISONE [Concomitant]
     Dosage: 0.1 MG, 1X/DAY
  7. IBUPROFEN [Concomitant]
     Dosage: 400 MG, UNK
  8. METOPROLOL [Concomitant]
     Indication: HYPERTENSION
     Dosage: 37.5 MG, UNK
  9. VITAMIN B-COMPLEX [Concomitant]
     Dosage: 1000 UG, 1X/DAY

REACTIONS (5)
  - Spinal fracture [Not Recovered/Not Resolved]
  - Adrenal insufficiency [Recovered/Resolved]
  - Diarrhoea [Recovered/Resolved]
  - Blood pressure increased [Recovered/Resolved]
  - Hyponatraemia [Recovered/Resolved]
